FAERS Safety Report 9108293 (Version 1)
Quarter: 2013Q1

REPORT INFORMATION
  Report Type: Spontaneous
  Country: CH (occurrence: CH)
  Receive Date: 20130222
  Receipt Date: 20130222
  Transmission Date: 20140127
  Serious: Yes (Hospitalization)
  Sender: FDA-Public Use
  Company Number: CH-BAYER-2013-022448

PATIENT
  Age: 78 Year
  Sex: Female

DRUGS (8)
  1. AVALOX [Suspect]
     Dosage: 400 MG, QD
     Route: 048
     Dates: start: 20130201, end: 20130202
  2. AUGMENTIN [Suspect]
     Dosage: 625 MG, BID
     Route: 048
     Dates: start: 20130203, end: 20130205
  3. SINTROM [Concomitant]
     Dosage: 1 MG, PRN
     Route: 048
  4. CARVEDILOL [Concomitant]
     Dosage: 12.5 MG, BID
     Route: 048
  5. PANTOZOL [Concomitant]
     Dosage: 20 MG, QD
     Route: 048
  6. ROCALTROL [Concomitant]
     Dosage: 0.25 MG, 3 PER 1 WEEK
     Route: 048
  7. CALCIUM CARBONATE [Concomitant]
     Route: 048
  8. ELTROXIN [Concomitant]
     Dosage: 0.1 MG, QD
     Route: 048

REACTIONS (4)
  - Rash [Recovered/Resolved]
  - Purpura [Recovered/Resolved]
  - Pruritus [Recovered/Resolved]
  - Hypersensitivity [Recovered/Resolved]
